FAERS Safety Report 19916005 (Version 1)
Quarter: 2021Q4

REPORT INFORMATION
  Report Type: Spontaneous
  Country: JP (occurrence: JP)
  Receive Date: 20211005
  Receipt Date: 20211005
  Transmission Date: 20220303
  Serious: Yes (Other)
  Sender: FDA-Public Use
  Company Number: JP-AMGEN-JPNSP2021150517

PATIENT

DRUGS (2)
  1. BLINATUMOMAB [Suspect]
     Active Substance: BLINATUMOMAB
     Indication: B precursor type acute leukaemia
     Dosage: UNK
     Route: 065
  2. PONATINIB [Suspect]
     Active Substance: PONATINIB
     Indication: B precursor type acute leukaemia
     Dosage: UNK
     Route: 065

REACTIONS (7)
  - Acute lymphocytic leukaemia recurrent [Unknown]
  - Tumour lysis syndrome [Unknown]
  - Cytokine release syndrome [Unknown]
  - Dysaesthesia [Unknown]
  - Tremor [Unknown]
  - Therapy partial responder [Unknown]
  - Headache [Unknown]
